FAERS Safety Report 10200160 (Version 1)
Quarter: 2014Q2

REPORT INFORMATION
  Report Type: Spontaneous
  Country: US (occurrence: US)
  Receive Date: 20140527
  Receipt Date: 20140527
  Transmission Date: 20141212
  Serious: Yes (Hospitalization)
  Sender: FDA-Public Use
  Company Number: US-UCBSA-121594

PATIENT
  Age: 47 Year
  Sex: Female

DRUGS (4)
  1. VIMPAT [Suspect]
     Indication: EPILEPSY
  2. VIMPAT [Suspect]
     Indication: MIGRAINE
  3. TOPAMAX [Concomitant]
     Indication: HEADACHE
  4. IMITREX [Concomitant]
     Indication: MIGRAINE

REACTIONS (3)
  - Convulsion [Recovering/Resolving]
  - Headache [Unknown]
  - Drug effect decreased [Unknown]
